FAERS Safety Report 19919773 (Version 12)
Quarter: 2025Q1

REPORT INFORMATION
  Report Type: Spontaneous
  Country: US (occurrence: US)
  Receive Date: 20211005
  Receipt Date: 20250205
  Transmission Date: 20250409
  Serious: No
  Sender: PFIZER
  Company Number: US-PFIZER INC-202101261262

PATIENT
  Age: 60 Year
  Sex: Female

DRUGS (19)
  1. IBRANCE [Suspect]
     Active Substance: PALBOCICLIB
     Indication: Breast cancer female
     Dates: start: 20210915
  2. IBRANCE [Suspect]
     Active Substance: PALBOCICLIB
     Dates: start: 20210918
  3. IBRANCE [Suspect]
     Active Substance: PALBOCICLIB
     Dates: start: 20210920
  4. IBRANCE [Suspect]
     Active Substance: PALBOCICLIB
     Dates: start: 20210921
  5. IBRANCE [Suspect]
     Active Substance: PALBOCICLIB
     Dates: start: 20210922
  6. IBRANCE [Suspect]
     Active Substance: PALBOCICLIB
     Dates: start: 20210923
  7. IBRANCE [Suspect]
     Active Substance: PALBOCICLIB
     Dates: start: 20211109
  8. IBRANCE [Suspect]
     Active Substance: PALBOCICLIB
     Dates: start: 20211031
  9. IBRANCE [Suspect]
     Active Substance: PALBOCICLIB
     Dates: start: 20210831
  10. IBRANCE [Suspect]
     Active Substance: PALBOCICLIB
     Route: 048
     Dates: start: 20241122
  11. IBRANCE [Suspect]
     Active Substance: PALBOCICLIB
     Route: 048
     Dates: start: 20250107
  12. AMOXICILLIN [Concomitant]
     Active Substance: AMOXICILLIN
  13. ANASTROZOLE [Concomitant]
     Active Substance: ANASTROZOLE
  14. CALCIUM CITRATE [Concomitant]
     Active Substance: CALCIUM CITRATE
  15. FULVESTRANT [Concomitant]
     Active Substance: FULVESTRANT
     Route: 030
  16. ACETAMINOPHEN\HYDROCODONE [Concomitant]
     Active Substance: ACETAMINOPHEN\HYDROCODONE
  17. ONE A DAY [MINERALS NOS;VITAMINS NOS] [Concomitant]
  18. SUNKIST VITAMIN C [Concomitant]
  19. VITAMIN B COMPLEX [Concomitant]
     Active Substance: CYANOCOBALAMIN\DEXPANTHENOL\NIACINAMIDE\PYRIDOXINE HYDROCHLORIDE\RIBOFLAVIN 5^-PHOSPHATE SODIUM\THIA

REACTIONS (19)
  - Dizziness [Not Recovered/Not Resolved]
  - Hypoaesthesia oral [Not Recovered/Not Resolved]
  - Dry mouth [Not Recovered/Not Resolved]
  - Lip dry [Not Recovered/Not Resolved]
  - Red blood cell count decreased [Not Recovered/Not Resolved]
  - Hypoaesthesia [Unknown]
  - Tumour marker increased [Not Recovered/Not Resolved]
  - Hot flush [Unknown]
  - Taste disorder [Unknown]
  - Constipation [Not Recovered/Not Resolved]
  - Paraesthesia [Unknown]
  - Blood iron decreased [Not Recovered/Not Resolved]
  - Headache [Not Recovered/Not Resolved]
  - Dysgeusia [Unknown]
  - White blood cell count decreased [Not Recovered/Not Resolved]
  - Stomatitis [Unknown]
  - Fatigue [Not Recovered/Not Resolved]
  - Anaemia [Not Recovered/Not Resolved]
  - Nausea [Not Recovered/Not Resolved]

NARRATIVE: CASE EVENT DATE: 20210101
